FAERS Safety Report 23284304 (Version 5)
Quarter: 2024Q3

REPORT INFORMATION
  Report Type: Spontaneous
  Country: US (occurrence: US)
  Receive Date: 20231211
  Receipt Date: 20240830
  Transmission Date: 20241017
  Serious: No
  Sender: BRISTOL MYERS SQUIBB
  Company Number: US-BRISTOL-MYERS SQUIBB COMPANY-2023-179126

PATIENT
  Age: 39 Year
  Sex: Female

DRUGS (2)
  1. SPRYCEL [Suspect]
     Active Substance: DASATINIB
     Indication: Chronic myeloid leukaemia
     Route: 048
     Dates: start: 202311
  2. SPRYCEL [Suspect]
     Active Substance: DASATINIB
     Indication: Acute myeloid leukaemia
     Route: 048
     Dates: start: 202311

REACTIONS (11)
  - Fatigue [Unknown]
  - Decreased activity [Unknown]
  - Constipation [Unknown]
  - Diarrhoea [Unknown]
  - Musculoskeletal pain [Unknown]
  - Nausea [Unknown]
  - Hypertrophy of tongue papillae [Unknown]
  - Alopecia [Unknown]
  - Anxiety [Unknown]
  - Chest pain [Unknown]
  - Chest discomfort [Unknown]
